FAERS Safety Report 4298508-5 (Version None)
Quarter: 2004Q1

REPORT INFORMATION
  Report Type: 
  Country: None (occurrence: None)
  Receive Date: 20040126
  Receipt Date: 20031009
  Transmission Date: 20041129
  Serious: No
  Sender: FDA-Public Use
  Company Number: USA030947937

PATIENT
  Age: 61 Year
  Sex: Female
  Weight: 70 kg

DRUGS (5)
  1. STRATTERA [Suspect]
     Indication: ATTENTION DEFICIT/HYPERACTIVITY DISORDER
     Dosage: 50 MG/DAY
     Dates: start: 20030501
  2. LIBRIUM [Concomitant]
  3. POTASSIUM [Concomitant]
  4. PROZAC [Concomitant]
  5. DIAZIDE (GLICLAZIDE) [Concomitant]

REACTIONS (10)
  - BLOOD POTASSIUM DECREASED [None]
  - CRYING [None]
  - DYSPNOEA [None]
  - FATIGUE [None]
  - FLUID RETENTION [None]
  - HEART RATE INCREASED [None]
  - HYPERTENSION [None]
  - IMPULSE-CONTROL DISORDER [None]
  - INSOMNIA [None]
  - MUSCLE CRAMP [None]
